FAERS Safety Report 5910076-8 (Version None)
Quarter: 2008Q4

REPORT INFORMATION
  Report Type: 
  Country: None (occurrence: None)
  Receive Date: 20081007
  Receipt Date: 20070831
  Transmission Date: 20090506
  Serious: No
  Sender: FDA-Public Use
  Company Number: US-ASTRAZENECA-2007UW20785

PATIENT
  Age: 66 Year
  Sex: Female
  Weight: 78.9 kg

DRUGS (10)
  1. ARIMIDEX [Suspect]
     Indication: BREAST CANCER
     Route: 048
     Dates: start: 20060101
  2. COZAAR [Concomitant]
  3. HYDROCHLOROTHIAZIDE [Concomitant]
  4. ZOCOR [Concomitant]
  5. NATALOL [Concomitant]
  6. LEVOTHYROXINE SODIUM [Concomitant]
     Route: 042
  7. HERCEPTIN [Concomitant]
  8. AMLODIPINE [Concomitant]
  9. LORAZEPAM [Concomitant]
  10. XANAX [Concomitant]

REACTIONS (2)
  - HYPERHIDROSIS [None]
  - SKIN ODOUR ABNORMAL [None]
